FAERS Safety Report 8157682-0 (Version None)
Quarter: 2012Q1

REPORT INFORMATION
  Report Type: 
  Country: None (occurrence: None)
  Receive Date: 20120222
  Receipt Date: 20120215
  Transmission Date: 20120608
  Serious: Yes (Hospitalization, Other)
  Sender: FDA-Public Use
  Company Number: BR-PFIZER INC-2012041755

PATIENT
  Age: 43 Year
  Sex: Female

DRUGS (2)
  1. BUPROPION [Concomitant]
     Indication: ANTIDEPRESSANT THERAPY
     Dosage: UNK
     Dates: start: 20110515
  2. ALPRAZOLAM [Suspect]
     Indication: ANTIDEPRESSANT THERAPY
     Dosage: 0.5 MG, 1X/DAY
     Route: 048
     Dates: start: 20091021

REACTIONS (2)
  - NEOPLASM [None]
  - INFLAMMATION [None]
